FAERS Safety Report 11363701 (Version 4)
Quarter: 2016Q4

REPORT INFORMATION
  Report Type: Spontaneous
  Country: CA (occurrence: CA)
  Receive Date: 20150811
  Receipt Date: 20161103
  Transmission Date: 20170206
  Serious: Yes (Hospitalization, Other)
  Sender: FDA-Public Use
  Company Number: CA-ROCHE-1619617

PATIENT
  Sex: Male

DRUGS (20)
  1. VITAMIN B6 [Concomitant]
     Active Substance: PYRIDOXINE HYDROCHLORIDE
  2. PANTOLOC [Concomitant]
     Active Substance: PANTOPRAZOLE SODIUM
  3. METFORMIN [Concomitant]
     Active Substance: METFORMIN HYDROCHLORIDE
     Route: 065
  4. JANUVIA [Concomitant]
     Active Substance: SITAGLIPTIN PHOSPHATE
  5. ISONIAZID. [Concomitant]
     Active Substance: ISONIAZID
  6. LASIX [Concomitant]
     Active Substance: FUROSEMIDE
     Route: 065
  7. GRAVOL [Concomitant]
     Active Substance: DIMENHYDRINATE
     Indication: PRODUCT USED FOR UNKNOWN INDICATION
     Route: 065
  8. ADVAIR HFA [Concomitant]
     Active Substance: FLUTICASONE PROPIONATE\SALMETEROL XINAFOATE
  9. SPIRIVA [Concomitant]
     Active Substance: TIOTROPIUM BROMIDE MONOHYDRATE
  10. ETHAMBUTOL [Concomitant]
     Active Substance: ETHAMBUTOL HYDROCHLORIDE
  11. AVELOX [Concomitant]
     Active Substance: MOXIFLOXACIN HYDROCHLORIDE
     Indication: PRODUCT USED FOR UNKNOWN INDICATION
     Route: 065
  12. XOLAIR [Suspect]
     Active Substance: OMALIZUMAB
     Indication: ASTHMA
     Dosage: 150 MG, EVERY FOUR WEEKS
     Route: 058
     Dates: start: 20130913
  13. COUMADIN [Concomitant]
     Active Substance: WARFARIN SODIUM
     Indication: PRODUCT USED FOR UNKNOWN INDICATION
     Route: 065
  14. AVAPRO [Concomitant]
     Active Substance: IRBESARTAN
  15. ZOFRAN [Concomitant]
     Active Substance: ONDANSETRON HYDROCHLORIDE
  16. CYMBALTA [Concomitant]
     Active Substance: DULOXETINE HYDROCHLORIDE
  17. BISOPROLOL [Concomitant]
     Active Substance: BISOPROLOL
     Indication: PRODUCT USED FOR UNKNOWN INDICATION
     Route: 065
  18. PYRAZINAMIDE. [Concomitant]
     Active Substance: PYRAZINAMIDE
     Route: 065
     Dates: end: 20150830
  19. FLOVENT [Concomitant]
     Active Substance: FLUTICASONE PROPIONATE
  20. FRAGMIN [Concomitant]
     Active Substance: DALTEPARIN SODIUM

REACTIONS (29)
  - Dyspnoea [Recovered/Resolved]
  - Arthropathy [Unknown]
  - Forced expiratory volume decreased [Unknown]
  - Restrictive pulmonary disease [Unknown]
  - Fall [Unknown]
  - Gait disturbance [Unknown]
  - Pneumonia [Unknown]
  - Asthma [Unknown]
  - Middle insomnia [Unknown]
  - Wheezing [Unknown]
  - Malaise [Unknown]
  - Vomiting [Recovered/Resolved]
  - Influenza [Unknown]
  - Peripheral swelling [Unknown]
  - Nausea [Recovered/Resolved]
  - Drug ineffective [Unknown]
  - Oedema peripheral [Unknown]
  - Forced vital capacity decreased [Unknown]
  - Rales [Unknown]
  - Transaminases increased [Unknown]
  - Candida infection [Recovering/Resolving]
  - Alanine aminotransferase increased [Unknown]
  - Lung disorder [Unknown]
  - Dyspnoea exertional [Not Recovered/Not Resolved]
  - Drug intolerance [Unknown]
  - Tuberculosis [Recovered/Resolved]
  - Cardiac failure congestive [Unknown]
  - Cardiac failure [Unknown]
  - Aspartate aminotransferase increased [Unknown]
